FAERS Safety Report 9091758 (Version 1)
Quarter: 2013Q1

REPORT INFORMATION
  Report Type: Report from Study
  Country: US (occurrence: US)
  Receive Date: 20130131
  Receipt Date: 20130131
  Transmission Date: 20140127
  Serious: No
  Sender: FDA-Public Use
  Company Number: US-ABBOTT-12P-163-1004216-00

PATIENT
  Sex: Female
  Weight: 68.1 kg

DRUGS (5)
  1. HUMIRA [Suspect]
     Indication: RHEUMATOID ARTHRITIS
     Dates: start: 2005, end: 2007
  2. ORENCIA [Suspect]
     Indication: PRODUCT USED FOR UNKNOWN INDICATION
     Dates: start: 201205, end: 201209
  3. VOLTAREN [Concomitant]
     Indication: RHEUMATOID ARTHRITIS
  4. PRINVIL [Concomitant]
     Indication: HYPERTENSION
  5. OXYBUTIN [Concomitant]
     Indication: HYPERTONIC BLADDER

REACTIONS (1)
  - Abasia [Not Recovered/Not Resolved]
